FAERS Safety Report 4979489-5 (Version None)
Quarter: 2006Q2

REPORT INFORMATION
  Report Type: 
  Country: None (occurrence: None)
  Receive Date: 20060418
  Receipt Date: 20060330
  Transmission Date: 20061013
  Serious: Yes (Other)
  Sender: FDA-Public Use
  Company Number: DE200604000115

PATIENT
  Age: 16 Year
  Sex: Male
  Weight: 68 kg

DRUGS (4)
  1. STRATTERA [Suspect]
     Indication: ATTENTION DEFICIT/HYPERACTIVITY DISORDER
     Dosage: SEE IMAGE  ORAL
     Route: 048
     Dates: end: 20060201
  2. STRATTERA [Suspect]
     Indication: ATTENTION DEFICIT/HYPERACTIVITY DISORDER
     Dosage: SEE IMAGE  ORAL
     Route: 048
     Dates: start: 20050901
  3. CONCERTA [Concomitant]
  4. DIPIPERON (PIPAMPERONE HYDROCHLORIDE) [Concomitant]

REACTIONS (4)
  - DEPRESSION [None]
  - INJURY ASPHYXIATION [None]
  - INTENTIONAL SELF-INJURY [None]
  - SUICIDE ATTEMPT [None]
